FAERS Safety Report 16534367 (Version 1)
Quarter: 2019Q3

REPORT INFORMATION
  Report Type: Spontaneous
  Country: US (occurrence: US)
  Receive Date: 20190704
  Receipt Date: 20190704
  Transmission Date: 20191004
  Serious: Yes (Life-Threatening)
  Sender: FDA-Public Use
  Company Number: None

PATIENT
  Age: 80 Year
  Sex: Female
  Weight: 34.5 kg

DRUGS (1)
  1. REMICADE [Suspect]
     Active Substance: INFLIXIMAB
     Indication: RHEUMATOID ARTHRITIS
     Dosage: ?          OTHER FREQUENCY:ONCE (2ND DOSE);?
     Route: 042
     Dates: start: 20190523

REACTIONS (3)
  - Dyspnoea [None]
  - Infusion related reaction [None]
  - Urticaria [None]

NARRATIVE: CASE EVENT DATE: 20190605
